FAERS Safety Report 24933357 (Version 1)
Quarter: 2025Q1

REPORT INFORMATION
  Report Type: Spontaneous
  Country: US (occurrence: US)
  Receive Date: 20250206
  Receipt Date: 20250206
  Transmission Date: 20250409
  Serious: Yes (Disabling, Other)
  Sender: NOVO NORDISK
  Company Number: US-NOVOPROD-1360836

PATIENT
  Sex: Female

DRUGS (1)
  1. WEGOVY [Suspect]
     Active Substance: SEMAGLUTIDE
     Indication: Blood cholesterol increased
     Route: 058

REACTIONS (3)
  - Spinal fracture [Unknown]
  - Disability [Unknown]
  - Off label use [Unknown]
